FAERS Safety Report 5730600-8 (Version None)
Quarter: 2008Q2

REPORT INFORMATION
  Report Type: 
  Country: None (occurrence: None)
  Receive Date: 20080507
  Receipt Date: 20080428
  Transmission Date: 20081010
  Serious: Yes (Disabling)
  Sender: FDA-Public Use
  Company Number: B0518586A

PATIENT
  Age: 47 Year
  Sex: Female

DRUGS (12)
  1. ZOPHREN [Suspect]
     Indication: PREMEDICATION
     Route: 042
  2. NEULASTA [Suspect]
     Indication: PREMEDICATION
     Route: 058
  3. ENDOXAN [Suspect]
     Indication: BREAST CANCER
     Dosage: 850MG CYCLIC
     Route: 042
     Dates: start: 20061002, end: 20070123
  4. POLARAMINE [Suspect]
     Indication: PREMEDICATION
     Route: 065
  5. TAMOXIFEN CITRATE [Suspect]
     Indication: HORMONE REPLACEMENT THERAPY
     Route: 048
     Dates: start: 20070501
  6. TAXOTERE [Suspect]
     Indication: BREAST CANCER
     Dosage: 125MG CYCLIC
     Route: 042
     Dates: start: 20061002, end: 20070123
  7. EPIRUBICIN HCL [Suspect]
     Indication: BREAST CANCER
     Dosage: 85MG CYCLIC
     Route: 042
     Dates: start: 20061002, end: 20070123
  8. CARDIOXANE [Suspect]
     Indication: BREAST CANCER
     Dosage: 850MG CYCLIC
     Route: 042
     Dates: start: 20061002, end: 20070123
  9. PRIMPERAN TAB [Suspect]
     Indication: PREMEDICATION
     Route: 042
  10. SOLU-MEDROL [Suspect]
     Indication: PREMEDICATION
     Route: 042
  11. OSMOTAN [Suspect]
     Indication: PREMEDICATION
     Route: 042
  12. HERCEPTIN [Suspect]
     Indication: BREAST CANCER
     Dosage: 340G CYCLIC
     Route: 042
     Dates: start: 20070515, end: 20071030

REACTIONS (2)
  - ASTHENIA [None]
  - HYPOTHYROIDISM [None]
